FAERS Safety Report 5490536-7 (Version None)
Quarter: 2007Q4

REPORT INFORMATION
  Report Type: 
  Country: None (occurrence: None)
  Receive Date: 20071019
  Receipt Date: 20071009
  Transmission Date: 20080405
  Serious: Yes (Other)
  Sender: FDA-Public Use
  Company Number: FRWYE327218SEP07

PATIENT
  Sex: Female

DRUGS (5)
  1. EFFEXOR [Suspect]
     Indication: PSYCHOTIC DISORDER
     Dosage: OVERDOSE AMOUNT WAS 1500 MG TOTAL DAILY
     Route: 048
     Dates: start: 20070801, end: 20070915
  2. EFFEXOR [Suspect]
     Indication: ANXIETY
     Dosage: OVERDOSE AMOUNT WAS 1500 MG TOTAL DAILY
     Route: 048
     Dates: start: 20070101
  3. BACLOFEN [Concomitant]
     Indication: HEREDITARY SPASTIC PARAPLEGIA
     Dosage: UNKNOWN
  4. ABILIFY [Concomitant]
     Indication: PSYCHOTIC DISORDER
     Dosage: UNKNOWN
     Dates: start: 20060101
  5. ABILIFY [Concomitant]
     Indication: ANXIETY

REACTIONS (5)
  - ANXIETY [None]
  - DRUG ABUSER [None]
  - DRUG WITHDRAWAL SYNDROME [None]
  - INTENTIONAL OVERDOSE [None]
  - MOBILITY DECREASED [None]
